FAERS Safety Report 11937057 (Version 1)
Quarter: 2016Q1

REPORT INFORMATION
  Report Type: Report from Study
  Country: US (occurrence: US)
  Receive Date: 20160121
  Receipt Date: 20160121
  Transmission Date: 20160526
  Serious: Yes (Death)
  Sender: FDA-Public Use
  Company Number: US-ACTELION-A-US2015-124805

PATIENT
  Age: 64 Year
  Sex: Female

DRUGS (1)
  1. VENTAVIS [Suspect]
     Active Substance: ILOPROST
     Indication: PULMONARY ARTERIAL HYPERTENSION
     Dosage: 5 MCG, 6-9 X/DAILY
     Route: 055
     Dates: start: 20150918, end: 2015

REACTIONS (6)
  - Angina pectoris [Unknown]
  - Death [Fatal]
  - Treatment noncompliance [Unknown]
  - Chest pain [Unknown]
  - No therapeutic response [Unknown]
  - Chest discomfort [Unknown]

NARRATIVE: CASE EVENT DATE: 201510
